FAERS Safety Report 16229483 (Version 1)
Quarter: 2019Q2

REPORT INFORMATION
  Report Type: Spontaneous
  Country: US (occurrence: US)
  Receive Date: 20190423
  Receipt Date: 20190423
  Transmission Date: 20190711
  Serious: No
  Sender: FDA-Public Use
  Company Number: US-SUNOVION-2019SUN001496

PATIENT
  Sex: Female

DRUGS (1)
  1. LATUDA [Suspect]
     Active Substance: LURASIDONE HYDROCHLORIDE
     Dosage: 40 MG, QD
     Route: 048

REACTIONS (16)
  - Neck pain [Unknown]
  - Muscle tightness [Unknown]
  - Headache [Unknown]
  - Dyspnoea exertional [Unknown]
  - Tinnitus [Unknown]
  - Muscle spasms [Unknown]
  - Fatigue [Unknown]
  - Muscular weakness [Unknown]
  - Dyspnoea [Unknown]
  - Stress [Unknown]
  - Arthralgia [Unknown]
  - Dysphagia [Unknown]
  - Vision blurred [Unknown]
  - Anxiety [Unknown]
  - Abdominal pain [Unknown]
  - Hypersensitivity [Unknown]
